FAERS Safety Report 5198095-3 (Version None)
Quarter: 2006Q4

REPORT INFORMATION
  Report Type: 
  Country: None (occurrence: None)
  Receive Date: 20061228
  Receipt Date: 20061218
  Transmission Date: 20070319
  Serious: Yes (Death)
  Sender: FDA-Public Use
  Company Number: B0451503A

PATIENT
  Age: 55 Year
  Sex: Male

DRUGS (4)
  1. HYCAMTIN [Suspect]
     Indication: PALLIATIVE CARE
     Dosage: 7 MG / SINGLE DOSE / INTRAVENOUS
     Route: 042
  2. CARBOPLATIN [Concomitant]
  3. ETOPOSIDE [Concomitant]
  4. PREDNISONE TAB [Concomitant]

REACTIONS (11)
  - DIFFUSE ALVEOLAR DAMAGE [None]
  - HYPOXIA [None]
  - INTERSTITIAL LUNG DISEASE [None]
  - LUNG INJURY [None]
  - METASTASES TO ADRENALS [None]
  - METASTASES TO HEART [None]
  - METASTASES TO LIVER [None]
  - POLYP [None]
  - RECURRENT CANCER [None]
  - RESPIRATORY FAILURE [None]
  - SMALL CELL LUNG CANCER STAGE UNSPECIFIED [None]
